FAERS Safety Report 5958385-0 (Version None)
Quarter: 2008Q4

REPORT INFORMATION
  Report Type: 
  Country: None (occurrence: None)
  Receive Date: 20081119
  Receipt Date: 20081112
  Transmission Date: 20090506
  Serious: Yes (Hospitalization, Other)
  Sender: FDA-Public Use
  Company Number: US-ASTRAZENECA-2006UW02168

PATIENT
  Age: 3827 Day
  Sex: Male

DRUGS (27)
  1. SEROQUEL [Suspect]
     Indication: AUTISM
     Route: 048
     Dates: start: 20021009, end: 20021015
  2. VALPROIC ACID [Concomitant]
     Dosage: 250 MG/5 ML SYRUP
  3. FLUOXETINE [Concomitant]
     Dosage: 20 MG
     Route: 048
  4. FLUOXETINE [Concomitant]
     Dosage: 20 MG/5 ML LIQUID
  5. GUANFACINE HYDROCHLORIDE [Concomitant]
     Route: 048
  6. TRAZODONE HCL [Concomitant]
     Route: 048
     Dates: start: 19990616, end: 19990915
  7. TRAZODONE HCL [Concomitant]
     Route: 048
     Dates: end: 19990915
  8. FLUOCINOLONE ACETONIDE [Concomitant]
     Dosage: 60 GM OF OINTMENT 0.025 %
  9. DEPAKOTE [Concomitant]
     Route: 048
     Dates: start: 20001006
  10. DEPAKOTE [Concomitant]
     Route: 048
     Dates: start: 20020101
  11. DEPAKOTE [Concomitant]
     Dosage: 500 MG
     Route: 048
     Dates: start: 20061208
  12. DEPAKOTE [Concomitant]
     Dosage: 500 AM AND 750 PM
     Route: 048
     Dates: start: 20060101
  13. HALOPERIDOL [Concomitant]
     Dosage: 2 MG/ML
  14. DIPHEN [Concomitant]
     Dosage: 12.5 MG/5 ML
  15. CLARITIN [Concomitant]
     Indication: RHINITIS ALLERGIC
     Dosage: 10 MG
     Route: 048
  16. AMBIEN [Concomitant]
     Route: 048
     Dates: start: 20001006
  17. AMBIEN [Concomitant]
     Route: 048
     Dates: start: 20020101
  18. ZYPREXA [Concomitant]
     Route: 048
     Dates: start: 20060223, end: 20061208
  19. RITALIN [Concomitant]
     Dates: start: 19991020, end: 19991101
  20. ADDERALL 10 [Concomitant]
     Dosage: 10 MG - 20 MG Q AM
     Route: 048
     Dates: start: 19980101
  21. ADDERALL 10 [Concomitant]
     Route: 048
     Dates: start: 19990120
  22. ADDERALL 10 [Concomitant]
     Dosage: 20 MG AM + NOON, 10 MG Q 4 PM
     Route: 048
     Dates: start: 19990616
  23. LORAZEPAM [Concomitant]
     Route: 048
     Dates: start: 19981207
  24. LORAZEPAM [Concomitant]
     Route: 048
     Dates: start: 19991229, end: 20000112
  25. CLONIDINE [Concomitant]
     Dosage: 0.1 MG - 0.2 MG
     Route: 048
     Dates: start: 20010228
  26. RISPERDAL [Concomitant]
     Dosage: 2 TO 4 MG
     Route: 048
     Dates: start: 20011204, end: 20021009
  27. BENADRYL [Concomitant]

REACTIONS (6)
  - AGGRESSION [None]
  - AGITATION [None]
  - CONVULSION [None]
  - EXTRAPYRAMIDAL DISORDER [None]
  - FOAMING AT MOUTH [None]
  - TARDIVE DYSKINESIA [None]
